FAERS Safety Report 22019124 (Version 5)
Quarter: 2023Q2

REPORT INFORMATION
  Report Type: Spontaneous
  Country: US (occurrence: US)
  Receive Date: 20230222
  Receipt Date: 20230420
  Transmission Date: 20230721
  Serious: No
  Sender: FDA-Public Use
  Company Number: US-BRISTOL-MYERS SQUIBB COMPANY-2023-025978

PATIENT
  Age: 67 Year
  Sex: Female

DRUGS (2)
  1. ORENCIA [Suspect]
     Active Substance: ABATACEPT
     Indication: Rheumatoid arthritis
     Route: 058
     Dates: start: 20221108
  2. ORENCIA [Suspect]
     Active Substance: ABATACEPT
     Route: 058
     Dates: start: 20221103

REACTIONS (7)
  - Pain [Unknown]
  - Joint swelling [Unknown]
  - Arthralgia [Unknown]
  - Headache [Unknown]
  - Blood pressure increased [Unknown]
  - Rheumatoid arthritis [Unknown]
  - Drug ineffective [Unknown]
